FAERS Safety Report 21983692 (Version 1)
Quarter: 2023Q1

REPORT INFORMATION
  Report Type: Spontaneous
  Country: US (occurrence: US)
  Receive Date: 20230213
  Receipt Date: 20230213
  Transmission Date: 20230417
  Serious: No
  Sender: FDA-Public Use
  Company Number: US-GLAXOSMITHKLINE-USCH2023005919

PATIENT
  Sex: Male

DRUGS (1)
  1. ABREVA [Suspect]
     Active Substance: DOCOSANOL
     Indication: Herpes virus infection
     Dosage: UNK

REACTIONS (3)
  - Herpes virus infection [Unknown]
  - Condition aggravated [Unknown]
  - Therapeutic product effect variable [Unknown]
